FAERS Safety Report 5210928-0 (Version None)
Quarter: 2007Q1

REPORT INFORMATION
  Report Type: 
  Country: None (occurrence: None)
  Receive Date: 20070117
  Receipt Date: 20070112
  Transmission Date: 20070707
  Serious: Yes (Hospitalization)
  Sender: FDA-Public Use
  Company Number: AR-ABBOTT-06P-007-0338588-01

PATIENT
  Sex: Female

DRUGS (3)
  1. RITONAVIR SOFT GELATIN CAPSULES [Suspect]
     Indication: HIV INFECTION
     Route: 048
     Dates: start: 20040921
  2. RITONAVIR SOFT GELATIN CAPSULES [Suspect]
     Dosage: DOSE TITRATED UP TO 200MG BID ON DAY 14
     Dates: end: 20060713
  3. TIPRANAVIR [Concomitant]
     Indication: HIV INFECTION
     Route: 048
     Dates: start: 20040921, end: 20060713

REACTIONS (1)
  - MENINGEAL DISORDER [None]
